FAERS Safety Report 5743067-0 (Version None)
Quarter: 2008Q2

REPORT INFORMATION
  Report Type: 
  Country: None (occurrence: None)
  Receive Date: 20080519
  Receipt Date: 20080514
  Transmission Date: 20081010
  Serious: Yes (Other)
  Sender: FDA-Public Use
  Company Number: US-ASTRAZENECA-2008UW09988

PATIENT
  Age: 73 Year
  Sex: Female
  Weight: 55.3 kg

DRUGS (7)
  1. CRESTOR [Suspect]
     Indication: BLOOD CHOLESTEROL INCREASED
     Dosage: 5 MG
     Route: 048
     Dates: start: 20070101
  2. CRESTOR [Suspect]
     Dosage: 5 MG EVERY OTHER DAY
     Route: 048
  3. ATENOLOL [Concomitant]
  4. ADVAIR DISKUS 100/50 [Concomitant]
     Dosage: 250 MG
  5. COD LIVER OIL [Concomitant]
  6. VITAMIN D [Concomitant]
     Dosage: 400 MG
  7. COZAAR [Concomitant]

REACTIONS (9)
  - BLOOD PRESSURE INCREASED [None]
  - DYSARTHRIA [None]
  - FACIAL PALSY [None]
  - GINGIVAL SWELLING [None]
  - LUMBAR SPINAL STENOSIS [None]
  - OEDEMA PERIPHERAL [None]
  - PAIN IN EXTREMITY [None]
  - SWOLLEN TONGUE [None]
  - TRANSIENT ISCHAEMIC ATTACK [None]
